FAERS Safety Report 21325732 (Version 1)
Quarter: 2022Q3

REPORT INFORMATION
  Report Type: Spontaneous
  Country: US (occurrence: US)
  Receive Date: 20220912
  Receipt Date: 20220912
  Transmission Date: 20221027
  Serious: No
  Sender: FDA-Public Use
  Company Number: US-BAUSCHBL-2022BNL000252

PATIENT
  Sex: Female

DRUGS (2)
  1. TIMOPTIC [Suspect]
     Active Substance: TIMOLOL MALEATE
     Indication: Glaucoma
     Route: 047
     Dates: start: 20220831, end: 20220831
  2. TIMOPTIC [Suspect]
     Active Substance: TIMOLOL MALEATE

REACTIONS (4)
  - Instillation site swelling [Recovered/Resolved]
  - Eyelid boil [Recovered/Resolved]
  - Instillation site erythema [Recovered/Resolved]
  - Instillation site irritation [Recovered/Resolved]

NARRATIVE: CASE EVENT DATE: 20220901
